FAERS Safety Report 6500224-3 (Version None)
Quarter: 2009Q4

REPORT INFORMATION
  Report Type: 
  Country: None (occurrence: None)
  Receive Date: 20091216
  Receipt Date: 20091204
  Transmission Date: 20100525
  Serious: Yes (Death)
  Sender: FDA-Public Use
  Company Number: CN-PFIZER INC-2009305894

PATIENT
  Age: 91 Year
  Sex: Female

DRUGS (2)
  1. ZYVOX [Suspect]
     Indication: PNEUMONIA
     Dosage: UNK
     Dates: start: 20090101
  2. MEROPENEM [Suspect]

REACTIONS (4)
  - DEATH [None]
  - LEUKOPENIA [None]
  - PLATELET COUNT DECREASED [None]
  - TRANSAMINASES INCREASED [None]
